FAERS Safety Report 14131750 (Version 1)
Quarter: 2017Q4

REPORT INFORMATION
  Report Type: Report from Study
  Country: GB (occurrence: GB)
  Receive Date: 20171026
  Receipt Date: 20171026
  Transmission Date: 20180321
  Serious: Yes (Other)
  Sender: FDA-Public Use
  Company Number: GB-CELGENEUS-GBR-20171006554

PATIENT
  Age: 81 Year

DRUGS (2)
  1. VIDAZA [Suspect]
     Active Substance: AZACITIDINE
     Indication: ACUTE MYELOID LEUKAEMIA
     Route: 065
  2. VIDAZA [Suspect]
     Active Substance: AZACITIDINE
     Indication: MYELODYSPLASTIC SYNDROME

REACTIONS (2)
  - Respiratory disorder [Unknown]
  - Cardiovascular disorder [Unknown]
